FAERS Safety Report 10177410 (Version 2)
Quarter: 2014Q2

REPORT INFORMATION
  Report Type: Spontaneous
  Country: IT (occurrence: IT)
  Receive Date: 20140516
  Receipt Date: 20140618
  Transmission Date: 20141212
  Serious: Yes (Death)
  Sender: FDA-Public Use
  Company Number: IT-CELGENEUS-083-21880-14050951

PATIENT
  Age: 63 Year
  Sex: Male

DRUGS (5)
  1. REVLIMID [Suspect]
     Indication: LYMPHOMA
     Dosage: 10 MILLIGRAM
     Route: 048
     Dates: start: 20131218, end: 20140218
  2. REVLIMID [Suspect]
     Indication: OFF LABEL USE
  3. ZEFFIX [Concomitant]
     Indication: HEPATITIS B
     Route: 065
  4. HUMULIN [Concomitant]
     Indication: DIABETES MELLITUS
     Route: 065
  5. ATENOLOL [Concomitant]
     Indication: CORONARY ARTERY DISEASE
     Route: 065

REACTIONS (1)
  - Lymphoma [Fatal]
